FAERS Safety Report 10039066 (Version 3)
Quarter: 2014Q2

REPORT INFORMATION
  Report Type: Report from Study
  Country: CA (occurrence: CA)
  Receive Date: 20140326
  Receipt Date: 20140502
  Transmission Date: 20141212
  Serious: Yes (Death, Life-Threatening, Other)
  Sender: FDA-Public Use
  Company Number: CA-CELGENEUS-028-C5013-13115790

PATIENT
  Age: 78 Year
  Sex: Male
  Weight: 58.5 kg

DRUGS (3)
  1. AZACITIDINE INJECTABLE [Suspect]
     Indication: ACUTE MYELOID LEUKAEMIA
     Dosage: 75 MILLIGRAM/SQ. METER
     Route: 058
     Dates: start: 20131108, end: 20131114
  2. HYDROMORPHONE [Concomitant]
     Indication: PAIN
     Route: 065
  3. ANTIBIOTICS [Concomitant]
     Indication: PNEUMONIA
     Route: 065

REACTIONS (1)
  - Central nervous system lesion [Fatal]
